FAERS Safety Report 12393153 (Version 2)
Quarter: 2017Q1

REPORT INFORMATION
  Report Type: Spontaneous
  Country: US (occurrence: US)
  Receive Date: 20160523
  Receipt Date: 20170118
  Transmission Date: 20170428
  Serious: No
  Sender: FDA-Public Use
  Company Number: US-PFIZER INC-2016268451

PATIENT
  Sex: Female

DRUGS (4)
  1. BACLOFEN. [Suspect]
     Active Substance: BACLOFEN
     Dosage: UNK
  2. MACROBID [Suspect]
     Active Substance: NITROFURANTOIN\NITROFURANTOIN MONOHYDRATE
     Dosage: UNK
  3. PENICILLIN V POTASSIUM. [Suspect]
     Active Substance: PENICILLIN V POTASSIUM
     Dosage: UNK
  4. CELEBREX [Suspect]
     Active Substance: CELECOXIB
     Dosage: UNK

REACTIONS (1)
  - Drug hypersensitivity [Unknown]
